FAERS Safety Report 5836052-1 (Version None)
Quarter: 2008Q3

REPORT INFORMATION
  Report Type: 
  Country: None (occurrence: None)
  Receive Date: 20080805
  Receipt Date: 20080722
  Transmission Date: 20090109
  Serious: Yes (Death)
  Sender: FDA-Public Use
  Company Number: 08P-062-0458194-00

PATIENT
  Age: 3 Month
  Sex: Female

DRUGS (7)
  1. SYNAGIS [Suspect]
     Indication: IMMUNISATION
     Dosage: (50 MG) SUBCUTANEOUS, (66 MG) SUBCUTANEOUS
     Route: 058
     Dates: start: 20080129, end: 20080129
  2. SYNAGIS [Suspect]
     Indication: IMMUNISATION
     Dosage: (50 MG) SUBCUTANEOUS, (66 MG) SUBCUTANEOUS
     Route: 058
     Dates: start: 20080305, end: 20080305
  3. SILDENAFIL (CAPSULES) [Concomitant]
  4. ACETYLSALICYLIC ACID (CAPSULES) [Concomitant]
  5. NUROFEN JUNIOR (IBUPROFEN) [Concomitant]
  6. CHLORALHYDRATE [Concomitant]
  7. LUMINALETTEN (PHENOBARBITAL) [Concomitant]

REACTIONS (1)
  - CARDIAC OPERATION [None]
